FAERS Safety Report 26082602 (Version 3)
Quarter: 2025Q4

REPORT INFORMATION
  Report Type: Spontaneous
  Country: CN (occurrence: CN)
  Receive Date: 20251124
  Receipt Date: 20251222
  Transmission Date: 20260118
  Serious: Yes (Hospitalization, Other)
  Sender: NOVO NORDISK
  Company Number: CN-NOVOPROD-1551598

PATIENT
  Age: 25 Year
  Sex: Female
  Weight: 85 kg

DRUGS (1)
  1. WEGOVY [Suspect]
     Active Substance: SEMAGLUTIDE
     Indication: Weight control
     Dosage: 1.7MG
     Dates: start: 20251016, end: 20251023

REACTIONS (8)
  - Liver injury [Recovering/Resolving]
  - Vomiting [Recovered/Resolved]
  - Pancreatitis acute [Recovering/Resolving]
  - Gastritis erosive [Recovering/Resolving]
  - Oedema mucosal [Recovering/Resolving]
  - Hepatic steatosis [Recovering/Resolving]
  - Gastritis [Recovering/Resolving]
  - Nausea [Recovered/Resolved]

NARRATIVE: CASE EVENT DATE: 20251016
